FAERS Safety Report 5003644-1 (Version None)
Quarter: 2006Q2

REPORT INFORMATION
  Report Type: 
  Country: None (occurrence: None)
  Receive Date: 20060511
  Receipt Date: 20060425
  Transmission Date: 20061013
  Serious: Yes (Hospitalization)
  Sender: FDA-Public Use
  Company Number: DSA_28104_2006

PATIENT
  Age: 38 Year
  Sex: Female

DRUGS (4)
  1. TAVOR   /00273201/ [Suspect]
     Dosage: 50 MG ONCE PO
     Route: 048
     Dates: start: 20060425, end: 20060425
  2. OXAZEPAM [Suspect]
     Dosage: 500 MG ONCE PO
     Route: 048
     Dates: start: 20060425, end: 20060425
  3. ROHYPNOL [Suspect]
     Dosage: 10 MG ONCE PO
     Route: 048
     Dates: start: 20060425, end: 20060425
  4. STINOX /00914901/ [Suspect]
     Dosage: 100 MG ONCE PO
     Route: 048
     Dates: start: 20060425, end: 20060425

REACTIONS (4)
  - HYPOTONIA [None]
  - MULTIPLE DRUG OVERDOSE INTENTIONAL [None]
  - SOMNOLENCE [None]
  - SUICIDE ATTEMPT [None]
